FAERS Safety Report 19846759 (Version 1)
Quarter: 2021Q3

REPORT INFORMATION
  Report Type: Spontaneous
  Country: GB (occurrence: GB)
  Receive Date: 20210917
  Receipt Date: 20210917
  Transmission Date: 20211014
  Serious: Yes (Other)
  Sender: FDA-Public Use
  Company Number: GB-TEVA-2021-GB-1952924

PATIENT
  Age: 79 Year
  Sex: Female
  Weight: 78 kg

DRUGS (20)
  1. CYCLIZINE [Concomitant]
     Active Substance: CYCLIZINE
     Dosage: 2 DOSAGE FORMS DAILY;
     Dates: start: 20210317
  2. MORPHINE SULFATE. [Concomitant]
     Active Substance: MORPHINE SULFATE
     Indication: PAIN
     Dosage: 5ML AS REQUIRED FOR PAIN UP TO HOURLY.
     Dates: start: 20210317
  3. PREDNISOLONE ACETATE. [Concomitant]
     Active Substance: PREDNISOLONE ACETATE
     Dosage: 1 DROP, 2?4 TIMES/DAY
     Dates: start: 20210317
  4. ALENDRONIC ACID [Concomitant]
     Active Substance: ALENDRONIC ACID
     Dosage: 1 DOSAGE FORMS
     Dates: start: 20210317
  5. LANSOPRAZOLE. [Concomitant]
     Active Substance: LANSOPRAZOLE
     Dosage: 1 DOSAGE FORMS DAILY;
     Dates: start: 20210317
  6. FLUCLOXACILLIN [Concomitant]
     Active Substance: FLUCLOXACILLIN
     Dosage: 4 DOSAGE FORMS DAILY;
     Dates: start: 20210609, end: 20210616
  7. MIDAZOLAM. [Concomitant]
     Active Substance: MIDAZOLAM
     Indication: SEIZURE
     Dosage: 5?10MG SC/IM PRN
     Dates: start: 20210701, end: 20210706
  8. ZOMORPH [Concomitant]
     Active Substance: MORPHINE SULFATE
     Dosage: 4 DOSAGE FORMS DAILY;
     Dates: start: 20210317
  9. ACICLOVIR [Concomitant]
     Active Substance: ACYCLOVIR
     Dosage: 2 DOSAGE FORMS DAILY;
     Dates: start: 20210317
  10. ADCAL [Concomitant]
     Dosage: 4 DOSAGE FORMS DAILY;
     Dates: start: 20210317
  11. BISACODYL. [Concomitant]
     Active Substance: BISACODYL
     Dosage: 1 DOSAGE FORMS DAILY;  EACH NIGHT
     Dates: start: 20210615
  12. LISINOPRIL. [Concomitant]
     Active Substance: LISINOPRIL
     Dosage: 1 DOSAGE FORMS DAILY;
     Dates: start: 20210317
  13. METRONIDAZOLE. [Concomitant]
     Active Substance: METRONIDAZOLE
     Dosage: 3 DOSAGE FORMS DAILY;
     Dates: start: 20210618, end: 20210625
  14. FUROSEMIDE. [Concomitant]
     Active Substance: FUROSEMIDE
     Dosage: 1 DOSAGE FORMS DAILY;  EACH MORNING
     Dates: start: 20210729, end: 20210826
  15. DEXAMETHASONE. [Concomitant]
     Active Substance: DEXAMETHASONE
     Dosage: USE AS DIRECTED
     Dates: start: 20210317
  16. RIVAROXABAN [Concomitant]
     Active Substance: RIVAROXABAN
     Dosage: 1 DOSAGE FORMS DAILY;
     Dates: start: 20210317
  17. SPIRONOLACTONE. [Suspect]
     Active Substance: SPIRONOLACTONE
     Dosage: 25 MILLIGRAM DAILY;
     Route: 065
     Dates: start: 20210805
  18. LEVETIRACETAM. [Concomitant]
     Active Substance: LEVETIRACETAM
     Dosage: 2 DOSAGE FORMS DAILY;
     Dates: start: 20210317
  19. MOVICOL [Concomitant]
     Active Substance: POLYETHYLENE GLYCOL 3350\POTASSIUM CHLORIDE\SODIUM BICARBONATE\SODIUM CHLORIDE
     Dosage: 2 DOSAGE FORMS DAILY;
     Dates: start: 20210317
  20. PHENOXYMETHYLPENICILLIN [Concomitant]
     Active Substance: PENICILLIN V
     Dosage: 4 DOSAGE FORMS DAILY;
     Dates: start: 20210317

REACTIONS (2)
  - Pruritus [Unknown]
  - Rash [Recovering/Resolving]

NARRATIVE: CASE EVENT DATE: 20210901
